FAERS Safety Report 5811600-6 (Version None)
Quarter: 2008Q3

REPORT INFORMATION
  Report Type: 
  Country: None (occurrence: None)
  Receive Date: 20080711
  Receipt Date: 20080711
  Transmission Date: 20090109
  Serious: No
  Sender: FDA-Public Use
  Company Number: None

PATIENT
  Sex: Female
  Weight: 79.3795 kg

DRUGS (6)
  1. ADVAIR DISKUS 100/50 [Suspect]
     Indication: ASTHMA
     Dates: start: 20060101
  2. COMBIVENT [Suspect]
     Indication: ASTHMA
     Dosage: 2 PUFFS 4X/DAY AS NEEDED
     Route: 055
     Dates: start: 20080401
  3. PAXIL [Suspect]
     Indication: ANXIETY
     Dosage: 30MG 1X/DAY
     Dates: start: 20010101
  4. PAXIL [Suspect]
     Indication: DEPRESSION
     Dosage: 30MG 1X/DAY
     Dates: start: 20010101
  5. SEROQUEL [Suspect]
     Indication: ANXIETY
     Dosage: 150 MG 2X/DAY
     Dates: start: 20060101
  6. SEROQUEL [Suspect]
     Indication: DEPRESSION
     Dosage: 150 MG 2X/DAY
     Dates: start: 20060101

REACTIONS (8)
  - ANXIETY [None]
  - DEPRESSION [None]
  - DRUG INEFFECTIVE [None]
  - INSOMNIA [None]
  - MANIA [None]
  - OBSESSIVE-COMPULSIVE DISORDER [None]
  - ORAL CANDIDIASIS [None]
  - THINKING ABNORMAL [None]
